FAERS Safety Report 5486072-4 (Version None)
Quarter: 2007Q4

REPORT INFORMATION
  Report Type: 
  Country: None (occurrence: None)
  Receive Date: 20071015
  Receipt Date: 20071003
  Transmission Date: 20080405
  Serious: Yes (Hospitalization, Other)
  Sender: FDA-Public Use
  Company Number: US-PFIZER INC-2007083263

PATIENT
  Sex: Female

DRUGS (3)
  1. LYRICA [Suspect]
     Indication: POST HERPETIC NEURALGIA
  2. LIDODERM [Concomitant]
     Route: 061
  3. CARDIOVASCULAR SYSTEM DRUGS [Concomitant]
     Indication: CARDIOVASCULAR DISORDER

REACTIONS (8)
  - ANOREXIA [None]
  - BREAKTHROUGH PAIN [None]
  - DEHYDRATION [None]
  - FLUID INTAKE REDUCED [None]
  - RENAL FAILURE [None]
  - SOMNOLENCE [None]
  - UNRESPONSIVE TO STIMULI [None]
  - URINARY TRACT INFECTION [None]
